FAERS Safety Report 21977582 (Version 4)
Quarter: 2023Q1

REPORT INFORMATION
  Report Type: Spontaneous
  Country: LT (occurrence: LT)
  Receive Date: 20230210
  Receipt Date: 20230217
  Transmission Date: 20230417
  Serious: Yes (Life-Threatening, Hospitalization, Other)
  Sender: FDA-Public Use
  Company Number: LT-Orion Corporation ORION PHARMA-OLAA2023-0001

PATIENT
  Age: 43 Year
  Sex: Male

DRUGS (12)
  1. OLANZAPINE [Suspect]
     Active Substance: OLANZAPINE
     Indication: Schizophrenia
     Dosage: 15 MG, DAILY
     Route: 048
     Dates: start: 2007
  2. OLANZAPINE [Suspect]
     Active Substance: OLANZAPINE
     Dosage: 10 MG, DAILY
     Route: 048
     Dates: start: 2015
  3. OLANZAPINE [Suspect]
     Active Substance: OLANZAPINE
     Dosage: 20 MG, DAILY
     Route: 048
     Dates: start: 201901
  4. CHLORPROMAZINE [Suspect]
     Active Substance: CHLORPROMAZINE
     Indication: Schizophrenia
     Dosage: 2 ML, PRN
     Route: 030
     Dates: start: 201901
  5. TRIHEXYPHENIDYL [Suspect]
     Active Substance: TRIHEXYPHENIDYL
     Indication: Schizophrenia
     Dosage: 6 MG, DAILY
     Route: 065
     Dates: start: 201904
  6. TRIHEXYPHENIDYL [Suspect]
     Active Substance: TRIHEXYPHENIDYL
     Dosage: 2 MG, UNKNOWN
     Route: 065
     Dates: start: 201904
  7. HALOPERIDOL DECANOATE [Suspect]
     Active Substance: HALOPERIDOL DECANOATE
     Indication: Schizophrenia
     Dosage: 70.52 DOSAGE FORM, MONTHLY (1/M)
     Route: 030
     Dates: start: 2018
  8. HALOPERIDOL DECANOATE [Suspect]
     Active Substance: HALOPERIDOL DECANOATE
     Dosage: 0.5% 1.0, BID
     Route: 030
     Dates: start: 201901
  9. HALOPERIDOL DECANOATE [Suspect]
     Active Substance: HALOPERIDOL DECANOATE
     Dosage: 70.52 DOSAGE FORM, WEEKLY (1/W)
     Route: 030
     Dates: start: 201904
  10. CLOZAPINE [Suspect]
     Active Substance: CLOZAPINE
     Indication: Schizophrenia
     Route: 065
  11. CLOZAPINE [Suspect]
     Active Substance: CLOZAPINE
     Dosage: 200 MG, DAILY
     Route: 065
  12. CHLORPROTHIXENE [Suspect]
     Active Substance: CHLORPROTHIXENE
     Indication: Product used for unknown indication
     Dosage: 50 MG, DAILY
     Route: 065
     Dates: start: 201904

REACTIONS (11)
  - Ileus paralytic [Unknown]
  - Intestinal pseudo-obstruction [Unknown]
  - Megacolon [Unknown]
  - Drug intolerance [Unknown]
  - Gastric ulcer [Unknown]
  - Gastrointestinal carcinoma [Unknown]
  - Carcinoid tumour in the large intestine [Unknown]
  - Hepatitis [Unknown]
  - Anaemia vitamin B12 deficiency [Unknown]
  - Gastritis [Unknown]
  - Cholelithiasis [Unknown]

NARRATIVE: CASE EVENT DATE: 20190101
